FAERS Safety Report 23306423 (Version 1)
Quarter: 2023Q4

REPORT INFORMATION
  Report Type: Spontaneous
  Country: US (occurrence: US)
  Receive Date: 20231218
  Receipt Date: 20231218
  Transmission Date: 20240110
  Serious: Yes (Other)
  Sender: FDA-Public Use
  Company Number: US-AMGEN-USASP2023223491

PATIENT
  Age: 78 Year
  Sex: Male

DRUGS (1)
  1. EVENITY [Suspect]
     Active Substance: ROMOSOZUMAB-AQQG
     Indication: Osteoporosis
     Dosage: UNK
     Route: 065
     Dates: start: 20230323, end: 20231025

REACTIONS (2)
  - Cerebrovascular accident [Unknown]
  - Hypertension [Unknown]

NARRATIVE: CASE EVENT DATE: 20230101
